FAERS Safety Report 8097290-3 (Version None)
Quarter: 2012Q1

REPORT INFORMATION
  Report Type: 
  Country: None (occurrence: None)
  Receive Date: 20120128
  Receipt Date: 20110627
  Transmission Date: 20120608
  Serious: No
  Sender: FDA-Public Use
  Company Number: US-ABBOTT-11P-163-0835212-00

PATIENT
  Sex: Female
  Weight: 59.02 kg

DRUGS (4)
  1. PLAQUENIL [Concomitant]
     Indication: RHEUMATOID ARTHRITIS
  2. HUMIRA [Suspect]
     Indication: RHEUMATOID ARTHRITIS
     Dates: start: 20110501
  3. IMURAN [Concomitant]
     Indication: RHEUMATOID ARTHRITIS
  4. ACCUTANE [Concomitant]
     Indication: ACNE

REACTIONS (1)
  - DYSPNOEA [None]
